FAERS Safety Report 11115979 (Version 1)
Quarter: 2015Q2

REPORT INFORMATION
  Report Type: Spontaneous
  Country: US (occurrence: None)
  Receive Date: 20150514
  Receipt Date: 20150514
  Transmission Date: 20150821
  Serious: Yes (Hospitalization)
  Sender: FDA-Public Use
  Company Number: None

PATIENT
  Age: 69 Year
  Sex: Male
  Weight: 104.9 kg

DRUGS (2)
  1. CYTARABINE. [Suspect]
     Active Substance: CYTARABINE
     Dates: end: 20140927
  2. DAUNORUBICIN [Suspect]
     Active Substance: DAUNORUBICIN
     Dates: end: 20140923

REACTIONS (5)
  - Blood creatinine increased [None]
  - Brain injury [None]
  - Electroencephalogram abnormal [None]
  - Atrial fibrillation [None]
  - Respiratory disorder [None]

NARRATIVE: CASE EVENT DATE: 20141012
